FAERS Safety Report 8590755-7 (Version None)
Quarter: 2012Q3

REPORT INFORMATION
  Report Type: 
  Country: None (occurrence: None)
  Receive Date: 20120813
  Receipt Date: 20120808
  Transmission Date: 20120928
  Serious: Yes (Hospitalization, Other)
  Sender: FDA-Public Use
  Company Number: US-009507513-1010USA01163

PATIENT

DRUGS (5)
  1. ESTRADIOL [Concomitant]
     Indication: HORMONE THERAPY
     Dates: start: 19840101
  2. FOSAMAX [Suspect]
     Dosage: 70 MG, UNK
     Route: 048
     Dates: start: 20081016, end: 20090402
  3. FOSAMAX [Suspect]
     Indication: BONE DISORDER
     Dosage: 70 MG, QW
     Route: 048
     Dates: start: 19981001, end: 20080602
  4. MK-9359 [Concomitant]
     Indication: CARDIAC DISORDER
     Dates: start: 19880101
  5. BONIVA [Suspect]
     Dosage: UNK DF, UNK
     Dates: start: 20080627, end: 20100701

REACTIONS (48)
  - CHEST PAIN [None]
  - PAIN [None]
  - SOMNOLENCE [None]
  - HAEMORRHAGE [None]
  - BLOOD POTASSIUM DECREASED [None]
  - ANAEMIA POSTOPERATIVE [None]
  - BLOOD CHOLESTEROL INCREASED [None]
  - HYPERTENSION [None]
  - FEMUR FRACTURE [None]
  - UPPER LIMB FRACTURE [None]
  - RADIUS FRACTURE [None]
  - CONTUSION [None]
  - ABDOMINAL PAIN [None]
  - BACK PAIN [None]
  - MYALGIA [None]
  - ALANINE AMINOTRANSFERASE ABNORMAL [None]
  - SKIN DISORDER [None]
  - DIARRHOEA [None]
  - ASTHENIA [None]
  - NAUSEA [None]
  - VENOUS INJURY [None]
  - OSTEOPENIA [None]
  - CORONARY ARTERY DISEASE [None]
  - PANCREATITIS [None]
  - HYPOMAGNESAEMIA [None]
  - GASTROINTESTINAL DISORDER [None]
  - GASTROOESOPHAGEAL REFLUX DISEASE [None]
  - CAROTIDYNIA [None]
  - FATIGUE [None]
  - TEMPERATURE INTOLERANCE [None]
  - HEAD INJURY [None]
  - LOBAR PNEUMONIA [None]
  - SYNCOPE [None]
  - VOMITING [None]
  - ILEUS [None]
  - URINARY TRACT INFECTION ENTEROCOCCAL [None]
  - HYPOTHYROIDISM [None]
  - GASTROENTERITIS [None]
  - GALLBLADDER DISORDER [None]
  - HAEMATOMA [None]
  - FIBROCYSTIC BREAST DISEASE [None]
  - CATARACT [None]
  - LOW TURNOVER OSTEOPATHY [None]
  - IMPAIRED HEALING [None]
  - FALL [None]
  - INTESTINAL OBSTRUCTION [None]
  - NOCTURIA [None]
  - HYPERSENSITIVITY [None]
